FAERS Safety Report 10399911 (Version 1)
Quarter: 2014Q3

REPORT INFORMATION
  Report Type: Spontaneous
  Country: US (occurrence: None)
  Receive Date: 20140819
  Receipt Date: 20140819
  Transmission Date: 20150326
  Serious: Yes (Hospitalization)
  Sender: FDA-Public Use
  Company Number: None

PATIENT
  Age: 66 Year
  Sex: Male
  Weight: 63.6 kg

DRUGS (1)
  1. METFORMIN [Suspect]
     Active Substance: METFORMIN HYDROCHLORIDE
     Dosage: MG
     Route: 048
     Dates: start: 20140525

REACTIONS (4)
  - Diarrhoea [None]
  - Hypotension [None]
  - Blood lactic acid increased [None]
  - Leukocytosis [None]

NARRATIVE: CASE EVENT DATE: 20140617
